FAERS Safety Report 12540039 (Version 2)
Quarter: 2016Q3

REPORT INFORMATION
  Report Type: Report from Study
  Country: ES (occurrence: ES)
  Receive Date: 20160708
  Receipt Date: 20160718
  Transmission Date: 20161109
  Serious: Yes (Hospitalization, Other)
  Sender: FDA-Public Use
  Company Number: ES-AMGEN-ESPSL2016086331

PATIENT
  Age: 76 Year
  Sex: Female
  Weight: 85 kg

DRUGS (16)
  1. HIDROFEROL [Concomitant]
     Active Substance: CALCIFEDIOL
     Dosage: UNK UNK, Q2WK
  2. EMCONCOR [Concomitant]
     Active Substance: BISOPROLOL FUMARATE
     Dosage: 2.5 MG, BID
  3. FENTANYL. [Concomitant]
     Active Substance: FENTANYL
     Dosage: 50 MUG, EVERY 72 HOURS
  4. LORMETAZEPAM [Concomitant]
     Active Substance: LORMETAZEPAM
     Dosage: UNK UNK, QD
  5. PARACETAMOL [Concomitant]
     Active Substance: ACETAMINOPHEN
     Dosage: 1 G, TID
  6. ADIRO [Concomitant]
     Active Substance: ASPIRIN
     Dosage: 100 MG, UNK
  7. HYDRAPRES [Concomitant]
     Dosage: 50 MG, TID
  8. TARDYFERON [Concomitant]
     Active Substance: FERROUS SULFATE
     Dosage: 80 MG, UNK
  9. UNIKET [Concomitant]
     Active Substance: ISOSORBIDE MONONITRATE
     Dosage: 40 MG, TID
  10. PANTOPRAZOLE [Concomitant]
     Active Substance: PANTOPRAZOLE SODIUM
     Dosage: 20 MG, BID
  11. PLAVIX [Concomitant]
     Active Substance: CLOPIDOGREL BISULFATE
     Dosage: 75 MG, QD
  12. ARANESP [Suspect]
     Active Substance: DARBEPOETIN ALFA
     Indication: RENAL FAILURE
     Dosage: 80 MUG, QWK
     Route: 058
     Dates: start: 20150102
  13. SIMVASTATIN. [Concomitant]
     Active Substance: SIMVASTATIN
     Dosage: 40 MG, QD
  14. FUROSEMIDE. [Concomitant]
     Active Substance: FUROSEMIDE
     Dosage: 40 MG, UNK
  15. ALLOPURINOL. [Concomitant]
     Active Substance: ALLOPURINOL
     Dosage: 100 MG, QD
  16. EUTIROX [Concomitant]
     Active Substance: LEVOTHYROXINE SODIUM
     Dosage: 112 MUG, UNK

REACTIONS (4)
  - Urinary bladder atrophy [Recovered/Resolved]
  - Bladder dysfunction [Unknown]
  - Post procedural haemorrhage [Recovered/Resolved]
  - Post procedural complication [Recovered/Resolved]
